FAERS Safety Report 5729665-9 (Version None)
Quarter: 2008Q2

REPORT INFORMATION
  Report Type: 
  Country: None (occurrence: None)
  Receive Date: 20080501
  Receipt Date: 20080424
  Transmission Date: 20081010
  Serious: Yes (Hospitalization)
  Sender: FDA-Public Use
  Company Number: GXKR2008DE00930

PATIENT
  Sex: Female
  Weight: 80 kg

DRUGS (9)
  1. AMANTADINE HCL [Suspect]
     Indication: PARKINSONISM
     Dosage: 100 MG, TID, ORAL
     Route: 048
     Dates: start: 20030101, end: 20080216
  2. PRAMIPEXOLE DIHYDROCHLORIDE [Concomitant]
  3. MADOPAR (BENSERAZIDE HYDROCHLORIDE, LEVODOPA) [Concomitant]
  4. NACOM - SLOW RELEASE (CARBIDOPA, LEVODOPA) [Concomitant]
  5. VIGANTOLETTEN (COLECALCIFEROL) [Concomitant]
  6. LEVOTHYROXINE SODIUM [Concomitant]
  7. MOVICOL (MACROGOL, POTASSIUM CHLORIDE, SODIUM BICARBONATE, SODIUM CHLO [Concomitant]
  8. LACTULOSE [Concomitant]
  9. CALCIUM SANNDOZ (CALCIUM CARBONATE, CALCIUM GLUBIONATE, CALCIUM GLUCON [Concomitant]

REACTIONS (5)
  - EYE DISORDER [None]
  - EYE MOVEMENT DISORDER [None]
  - SCLERODERMA [None]
  - STRABISMUS [None]
  - SYNCOPE [None]
